FAERS Safety Report 13854743 (Version 3)
Quarter: 2017Q3

REPORT INFORMATION
  Report Type: Spontaneous
  Country: JP (occurrence: JP)
  Receive Date: 20170810
  Receipt Date: 20170908
  Transmission Date: 20171127
  Serious: Yes (Hospitalization, Other)
  Sender: FDA-Public Use
  Company Number: JP-BRISTOL-MYERS SQUIBB COMPANY-BMS-2017-060997

PATIENT
  Age: 80 Year
  Sex: Male
  Weight: 50 kg

DRUGS (8)
  1. ASPIRIN. [Suspect]
     Active Substance: ASPIRIN
     Indication: MYOCARDIAL INFARCTION
     Dosage: 100 MG, QD
     Route: 048
     Dates: start: 20141127
  2. URIEF [Concomitant]
     Active Substance: SILODOSIN
     Indication: DYSURIA
     Dosage: 4 MG, BID
     Route: 048
     Dates: end: 20170629
  3. ETIZOLAM [Concomitant]
     Active Substance: ETIZOLAM
     Indication: INSOMNIA
     Dosage: 0.5 MG, QD
     Route: 048
     Dates: end: 20170629
  4. REFLEX                             /01293201/ [Concomitant]
     Active Substance: MIRTAZAPINE
     Indication: INSOMNIA
     Dosage: 705 MG, QD
     Route: 048
     Dates: end: 20170629
  5. NEXIUM [Concomitant]
     Active Substance: ESOMEPRAZOLE MAGNESIUM
     Indication: PROPHYLAXIS AGAINST GASTROINTESTINAL ULCER
     Dosage: 20 MG, QD
     Route: 048
     Dates: end: 20170629
  6. ELIQUIS [Suspect]
     Active Substance: APIXABAN
     Indication: CEREBROVASCULAR ACCIDENT PROPHYLAXIS
     Dosage: 2.5 MG, BID
     Route: 048
     Dates: start: 2015
  7. AVOLVE [Concomitant]
     Active Substance: DUTASTERIDE
     Indication: DYSURIA
     Dosage: 0.5 MG, QD
     Route: 048
     Dates: end: 20170629
  8. REBAMIPIDE [Concomitant]
     Active Substance: REBAMIPIDE
     Indication: PRODUCT USED FOR UNKNOWN INDICATION
     Dosage: 100 MG, BID
     Route: 048
     Dates: end: 20170629

REACTIONS (1)
  - Thalamus haemorrhage [Not Recovered/Not Resolved]

NARRATIVE: CASE EVENT DATE: 20170630
